FAERS Safety Report 15015822 (Version 1)
Quarter: 2018Q2

REPORT INFORMATION
  Report Type: Spontaneous
  Country: US (occurrence: US)
  Receive Date: 20180615
  Receipt Date: 20180615
  Transmission Date: 20180711
  Serious: No
  Sender: FDA-Public Use
  Company Number: US-SA-2018SA157264

PATIENT
  Sex: Female

DRUGS (24)
  1. ADVAIR DISKUS [Concomitant]
     Active Substance: FLUTICASONE PROPIONATE\SALMETEROL XINAFOATE
  2. TIZANIDINE HYDROCHLORIDE. [Concomitant]
     Active Substance: TIZANIDINE HYDROCHLORIDE
  3. BUPROPION HYDROCHLORIDE. [Concomitant]
     Active Substance: BUPROPION HYDROCHLORIDE
  4. AUBAGIO [Suspect]
     Active Substance: TERIFLUNOMIDE
     Indication: MULTIPLE SCLEROSIS
     Dosage: 14 MG, QD
     Route: 048
  5. PERCOCET [OXYCODONE HYDROCHLORIDE;PARACETAMOL] [Concomitant]
  6. DEXTROAMPHETAMINE HYDROCHLORIDE [Concomitant]
     Active Substance: DEXTROAMPHETAMINE HYDROCHLORIDE
  7. LORAZEPAM. [Concomitant]
     Active Substance: LORAZEPAM
  8. ABILIFY [Concomitant]
     Active Substance: ARIPIPRAZOLE
  9. GABAPENTIN. [Concomitant]
     Active Substance: GABAPENTIN
  10. ACETAMINOPHEN;HYDROCODONE [Concomitant]
  11. SENOKOT [Concomitant]
     Active Substance: SENNOSIDES
  12. BUPROPION HYDROCHLORIDE. [Concomitant]
     Active Substance: BUPROPION HYDROCHLORIDE
  13. METHOCARBAMOL H A [Concomitant]
  14. ACYCLOVIR [ACICLOVIR] [Concomitant]
     Active Substance: ACYCLOVIR
  15. AZITHROMYCIN ANHYDROUS. [Concomitant]
     Active Substance: AZITHROMYCIN ANHYDROUS
  16. PREDNISONE. [Concomitant]
     Active Substance: PREDNISONE
  17. MELOXICAM. [Concomitant]
     Active Substance: MELOXICAM
  18. VALIUM [Concomitant]
     Active Substance: DIAZEPAM
  19. LORATADINE. [Concomitant]
     Active Substance: LORATADINE
  20. SINGULAIR [Concomitant]
     Active Substance: MONTELUKAST SODIUM
  21. FLUTICASONE PROPIONATE. [Concomitant]
     Active Substance: FLUTICASONE PROPIONATE
  22. ESCITALOPRAM OXALATE. [Concomitant]
     Active Substance: ESCITALOPRAM OXALATE
  23. CEPHALEXINE [Concomitant]
     Active Substance: CEPHALEXIN
  24. METRONIDAZOLE. [Concomitant]
     Active Substance: METRONIDAZOLE

REACTIONS (2)
  - Blood glucose increased [Not Recovered/Not Resolved]
  - Hypertension [Not Recovered/Not Resolved]
